FAERS Safety Report 11552252 (Version 2)
Quarter: 2015Q4

REPORT INFORMATION
  Report Type: Spontaneous
  Country: JP (occurrence: JP)
  Receive Date: 20150925
  Receipt Date: 20151020
  Transmission Date: 20160304
  Serious: Yes (Other)
  Sender: FDA-Public Use
  Company Number: PHJP2015JP007987

PATIENT
  Age: 85 Year
  Sex: Male
  Weight: 35 kg

DRUGS (11)
  1. TEGRETOL [Suspect]
     Active Substance: CARBAMAZEPINE
     Dosage: 100 MG, BID
     Route: 048
     Dates: end: 20150325
  2. GOODMIN [Concomitant]
     Active Substance: BROTIZOLAM
     Indication: INSOMNIA
     Dosage: 0.25 MG, QD
     Route: 048
     Dates: start: 20150226, end: 20150308
  3. CONIEL [Concomitant]
     Active Substance: BENIDIPINE HYDROCHLORIDE
     Indication: HYPERTENSION
     Dosage: 4 MG, QD
     Route: 048
     Dates: end: 20150412
  4. SODIUM BICARBONATE. [Concomitant]
     Active Substance: SODIUM BICARBONATE
     Indication: GASTRITIS
     Dosage: 1.5 G, BID
     Route: 048
     Dates: end: 20150403
  5. ALDACTONE A [Concomitant]
     Active Substance: SPIRONOLACTONE
     Indication: HYPERTENSION
     Dosage: 25 MG, QD
     Route: 048
     Dates: start: 20150305, end: 20150403
  6. LASIX [Concomitant]
     Active Substance: FUROSEMIDE
     Indication: OLIGURIA
     Dosage: 20 MG, QD
     Route: 048
     Dates: start: 20150404
  7. OLMETEC [Concomitant]
     Active Substance: OLMESARTAN MEDOXOMIL
     Indication: HYPERTENSION
     Dosage: 20 MG, QD
     Route: 048
     Dates: start: 20150226, end: 20150412
  8. REFLEX [Concomitant]
     Active Substance: MIRTAZAPINE
     Indication: DEPRESSION
     Dosage: 15 MG, QD
     Route: 048
     Dates: start: 20150310
  9. CELESTAMINE [Concomitant]
     Active Substance: BETAMETHASONE\DEXCHLORPHENIRAMINE MALEATE
     Indication: PRURITUS
     Dosage: 2 DF, QD
     Route: 048
     Dates: start: 20150414
  10. TEGRETOL [Suspect]
     Active Substance: CARBAMAZEPINE
     Indication: EPILEPSY
     Dosage: UNK
     Route: 048
     Dates: start: 2000
  11. LANSOPRAZOLE. [Concomitant]
     Active Substance: LANSOPRAZOLE
     Indication: GASTROOESOPHAGEAL REFLUX DISEASE
     Dosage: 15 MG, QD
     Route: 048
     Dates: start: 20150303

REACTIONS (5)
  - Pancytopenia [Recovering/Resolving]
  - Hemiplegia [Unknown]
  - Nephrogenic anaemia [Unknown]
  - Dyslalia [Unknown]
  - Cerebral haemorrhage [Unknown]

NARRATIVE: CASE EVENT DATE: 20150108
